FAERS Safety Report 19271412 (Version 2)
Quarter: 2021Q2

REPORT INFORMATION
  Report Type: Report from Study
  Country: CA (occurrence: CA)
  Receive Date: 20210519
  Receipt Date: 20210601
  Transmission Date: 20210717
  Serious: Yes (Other)
  Sender: FDA-Public Use
  Company Number: CA-JNJFOC-20210522585

PATIENT
  Age: 49 Year
  Sex: Female

DRUGS (2)
  1. SIMPONI [Suspect]
     Active Substance: GOLIMUMAB
     Indication: CROHN^S DISEASE
     Dosage: STRENGTH = 100 MG
     Route: 058
     Dates: start: 20210312, end: 20210412
  2. SIMPONI [Suspect]
     Active Substance: GOLIMUMAB
     Indication: ANKYLOSING SPONDYLITIS
     Route: 042

REACTIONS (5)
  - Loss of consciousness [Unknown]
  - Infection [Unknown]
  - Product use in unapproved indication [Unknown]
  - Ear infection [Unknown]
  - Off label use [Unknown]

NARRATIVE: CASE EVENT DATE: 20210510
